FAERS Safety Report 24187178 (Version 2)
Quarter: 2024Q3

REPORT INFORMATION
  Report Type: Report from Study
  Country: US (occurrence: US)
  Receive Date: 20240808
  Receipt Date: 20240909
  Transmission Date: 20241016
  Serious: Yes (Other)
  Sender: ABBVIE
  Company Number: US-ABBVIE-5868303

PATIENT
  Age: 51 Year
  Sex: Male

DRUGS (2)
  1. RINVOQ [Suspect]
     Active Substance: UPADACITINIB
     Indication: Dermatitis atopic
     Route: 048
     Dates: start: 20240802
  2. RINVOQ [Suspect]
     Active Substance: UPADACITINIB
     Indication: Dermatitis atopic
     Route: 048
     Dates: start: 2022, end: 202302

REACTIONS (7)
  - Meniscus injury [Recovering/Resolving]
  - Vision blurred [Recovering/Resolving]
  - Blood cholesterol increased [Unknown]
  - Tendon rupture [Recovering/Resolving]
  - Skin exfoliation [Unknown]
  - Dry skin [Unknown]
  - Skin disorder [Unknown]

NARRATIVE: CASE EVENT DATE: 20230201
